FAERS Safety Report 9248963 (Version 1)
Quarter: 2013Q1

REPORT INFORMATION
  Report Type: Spontaneous
  Country: US (occurrence: None)
  Receive Date: 20130305
  Receipt Date: 20130305
  Transmission Date: 20140127
  Serious: Yes (Hospitalization)
  Sender: FDA-Public Use
  Company Number: 163-21880-12053165

PATIENT
  Age: 79 Year
  Sex: Male

DRUGS (1)
  1. REVLIMID [Suspect]
     Indication: PLASMA CELL MYELOMA
     Dosage: 15MG, DAILY FOR 21 DAYS Q 42)
     Route: 048
     Dates: start: 20120514

REACTIONS (4)
  - Pneumonia [None]
  - Nausea [None]
  - Vomiting [None]
  - Diarrhoea [None]
